FAERS Safety Report 20884257 (Version 1)
Quarter: 2022Q2

REPORT INFORMATION
  Report Type: Spontaneous
  Country: US (occurrence: None)
  Receive Date: 20220526
  Receipt Date: 20220526
  Transmission Date: 20220721
  Serious: Yes (Hospitalization)
  Sender: FDA-Public Use
  Company Number: None

PATIENT
  Age: 82 Year
  Sex: Male

DRUGS (1)
  1. REVLIMID [Suspect]
     Active Substance: LENALIDOMIDE

REACTIONS (6)
  - Peripheral swelling [None]
  - Peripheral swelling [None]
  - Pruritus [None]
  - Erythema [None]
  - Pruritus [None]
  - Asthenia [None]

NARRATIVE: CASE EVENT DATE: 20220526
